FAERS Safety Report 7294233-7 (Version None)
Quarter: 2011Q1

REPORT INFORMATION
  Report Type: 
  Country: None (occurrence: None)
  Receive Date: 20110215
  Receipt Date: 20110208
  Transmission Date: 20110831
  Serious: Yes (Hospitalization)
  Sender: FDA-Public Use
  Company Number: US-US-EMD SERONO, INC.-230431J10USA

PATIENT
  Sex: Female

DRUGS (3)
  1. REBIF [Suspect]
     Indication: MULTIPLE SCLEROSIS
     Route: 058
     Dates: start: 20080301, end: 20090701
  2. COPAXONE [Concomitant]
     Dates: start: 20090901, end: 20090101
  3. REBIF [Suspect]
     Route: 058
     Dates: start: 20091001

REACTIONS (3)
  - CERVICAL DYSPLASIA [None]
  - POST PROCEDURAL INFECTION [None]
  - INFLUENZA LIKE ILLNESS [None]
